FAERS Safety Report 7594418-6 (Version None)
Quarter: 2011Q3

REPORT INFORMATION
  Report Type: 
  Country: None (occurrence: None)
  Receive Date: 20110707
  Receipt Date: 20110627
  Transmission Date: 20111222
  Serious: No
  Sender: FDA-Public Use
  Company Number: US-BIOGENIDEC-2011BI023659

PATIENT
  Age: 56 Year
  Sex: Female

DRUGS (1)
  1. AVONEX [Suspect]
     Indication: MULTIPLE SCLEROSIS
     Route: 030
     Dates: start: 20100402

REACTIONS (7)
  - INJECTION SITE MASS [None]
  - PAIN [None]
  - PANIC ATTACK [None]
  - INJECTION SITE HAEMORRHAGE [None]
  - EMOTIONAL DISTRESS [None]
  - INFLUENZA LIKE ILLNESS [None]
  - HYPERTENSION [None]
